FAERS Safety Report 8273003-7 (Version None)
Quarter: 2012Q2

REPORT INFORMATION
  Report Type: 
  Country: None (occurrence: None)
  Receive Date: 20120411
  Receipt Date: 20120403
  Transmission Date: 20120825
  Serious: Yes (Hospitalization, Other)
  Sender: FDA-Public Use
  Company Number: US-BAYER-2011-091165

PATIENT
  Age: 23 Year
  Sex: Female
  Weight: 102 kg

DRUGS (6)
  1. PREVACID [Concomitant]
     Indication: ABDOMINAL DISCOMFORT
     Dosage: UNK
     Dates: start: 20050101
  2. ALAVERT [Concomitant]
     Dosage: DAILY
  3. ALBUTEROL [Concomitant]
     Dosage: UNK UNK, PRN
  4. YASMIN [Suspect]
     Dosage: UNK
     Route: 048
     Dates: start: 20031001, end: 20060101
  5. ZANTAC [Concomitant]
     Dosage: 150 MG, BID
  6. DROSPIRENONE AND ETHINYL ESTRADIOL [Suspect]
     Dosage: UNK
     Dates: start: 20031001, end: 20060101

REACTIONS (8)
  - CHOLECYSTITIS ACUTE [None]
  - GALLBLADDER DISORDER [None]
  - ANHEDONIA [None]
  - INJURY [None]
  - PAIN [None]
  - EMOTIONAL DISTRESS [None]
  - GENERAL PHYSICAL HEALTH DETERIORATION [None]
  - ANXIETY [None]
